FAERS Safety Report 9285792 (Version 1)
Quarter: 2013Q2

REPORT INFORMATION
  Report Type: Spontaneous
  Country: US (occurrence: US)
  Receive Date: 20130513
  Receipt Date: 20130513
  Transmission Date: 20140414
  Serious: Yes (Hospitalization)
  Sender: FDA-Public Use
  Company Number: US-PFIZER INC-2013146314

PATIENT
  Age: 53 Year
  Sex: Female
  Weight: 83.9 kg

DRUGS (6)
  1. EFFEXOR [Suspect]
     Indication: DEPRESSION
     Dosage: 150 MG DAILY
     Dates: start: 20130104, end: 20130226
  2. EFFEXOR [Suspect]
     Dosage: 75 MG DAILY
     Dates: start: 20130227
  3. EFFEXOR [Suspect]
     Dosage: 37.5 MG DAILY
     Dates: end: 20130322
  4. AMLODIPINE [Suspect]
     Indication: BLOOD PRESSURE INCREASED
     Dosage: HALF TABLET OF 5 MG DAILY
     Route: 048
  5. AMLODIPINE [Suspect]
     Dosage: 5 MG DAILY
     Route: 048
  6. LOVASTATIN [Concomitant]
     Indication: BLOOD CHOLESTEROL INCREASED
     Dosage: 40 MG DAILY

REACTIONS (13)
  - Cerebrovascular accident [Unknown]
  - Blood pressure increased [Unknown]
  - Headache [Unknown]
  - Nausea [Unknown]
  - Blood glucose increased [Unknown]
  - Chills [Unknown]
  - Insomnia [Unknown]
  - Anxiety [Unknown]
  - Vomiting [Unknown]
  - Tinnitus [Unknown]
  - Pain [Unknown]
  - Feeling abnormal [Unknown]
  - Drug ineffective [Unknown]
